FAERS Safety Report 18887839 (Version 1)
Quarter: 2021Q1

REPORT INFORMATION
  Report Type: Spontaneous
  Country: US (occurrence: US)
  Receive Date: 20210212
  Receipt Date: 20210212
  Transmission Date: 20210420
  Serious: Yes (Other)
  Sender: FDA-Public Use
  Company Number: US-PFIZER INC-2020493177

PATIENT
  Age: 74 Year
  Sex: Male

DRUGS (1)
  1. CADUET [Suspect]
     Active Substance: AMLODIPINE BESYLATE\ATORVASTATIN CALCIUM
     Dosage: UNK, ALTERNATE DAY (TAKING IT EVERY OTHER DAY)

REACTIONS (3)
  - Intraocular pressure increased [Unknown]
  - Off label use [Unknown]
  - Glaucoma [Unknown]
